FAERS Safety Report 4743003-X (Version None)
Quarter: 2005Q3

REPORT INFORMATION
  Report Type: 
  Country: None (occurrence: None)
  Receive Date: 20050811
  Receipt Date: 20050617
  Transmission Date: 20060218
  Serious: Yes (Hospitalization, Other)
  Sender: FDA-Public Use
  Company Number: BE-ABBOTT-05P-013-0303722-00

PATIENT
  Sex: Male
  Weight: 69 kg

DRUGS (23)
  1. ZEMPLAR [Suspect]
     Indication: HYPERPARATHYROIDISM
     Dosage: NOT REPORTED
     Route: 042
     Dates: start: 20050530
  2. CALCIUM CARBONATE [Concomitant]
     Indication: BLOOD PHOSPHORUS INCREASED
     Dates: start: 20040730, end: 20050706
  3. CALCIUM CARBONATE [Concomitant]
     Dates: start: 20050706
  4. NADROPARIN [Concomitant]
     Indication: ANTICOAGULANT THERAPY
     Dates: start: 20050506, end: 20050706
  5. NITROGLYCERIN [Concomitant]
     Indication: DRUG USE FOR UNKNOWN INDICATION
     Dates: start: 20050603, end: 20050706
  6. NATRIUMBICARBONAT [Concomitant]
     Indication: DRUG USE FOR UNKNOWN INDICATION
     Dates: start: 20050604, end: 20050706
  7. DOMPERIDON [Concomitant]
     Indication: GASTRIC DISORDER
     Dates: start: 20050608, end: 20050706
  8. DUOVENT [Concomitant]
     Indication: CHRONIC OBSTRUCTIVE PULMONARY DISEASE
     Dosage: PUFF, AS NECESSARY
     Dates: start: 20040513
  9. SEVELAMER [Concomitant]
     Indication: BLOOD PHOSPHORUS INCREASED
     Dates: start: 20040730
  10. METOPROLOL [Concomitant]
     Indication: HYPERTENSION
     Dates: start: 20041029
  11. SERIGOLE DISKUS [Concomitant]
     Indication: CHRONIC OBSTRUCTIVE PULMONARY DISEASE
     Dosage: 50/500, 2X1 PUFF
     Dates: start: 20041030
  12. LOSARTAN [Concomitant]
     Indication: HYPERTENSION
     Dates: start: 20041116
  13. CETIRIZINE HCL [Concomitant]
     Indication: PRURITUS
     Dates: start: 20050112
  14. ZOLPIDEM HEMI-TARTRAT [Concomitant]
     Indication: SLEEP DISORDER
     Dates: start: 20050115
  15. AMLODIPINE [Concomitant]
     Indication: HYPERTENSION
     Dates: start: 20050129
  16. OMEPRAZOLE [Concomitant]
     Indication: GASTRIC DISORDER
     Dates: start: 20050610
  17. PARACETAMOL CODEINE FOSFOAT [Concomitant]
     Indication: PYREXIA
     Dosage: NOT REPORTED
     Dates: start: 20050601, end: 20050603
  18. CEFEPIMDIHYDRO-CHLORIDEMONOHYDROAT [Concomitant]
     Indication: ANTIBIOTIC PROPHYLAXIS
     Dosage: AFTER DIALYSIS
     Dates: start: 20050606, end: 20050606
  19. CIPROFLOXACIN [Concomitant]
     Indication: URINARY TRACT INFECTION
     Dosage: AFTER DIALYSIS
     Route: 042
     Dates: start: 20050612, end: 20050617
  20. CIPROFLOXACIN [Concomitant]
     Dates: start: 20050612, end: 20050626
  21. TEICOPLANIN [Concomitant]
     Indication: ANTIBIOTIC PROPHYLAXIS
     Dosage: AFTER DIALYSIS
     Dates: start: 20050606, end: 20050606
  22. PARACETAMOL [Concomitant]
     Indication: PYREXIA
     Route: 042
     Dates: start: 20050612, end: 20050612
  23. EPOGEN [Concomitant]
     Indication: ANAEMIA
     Dates: start: 20050629

REACTIONS (4)
  - COLITIS ISCHAEMIC [None]
  - PYREXIA [None]
  - URINARY TRACT INFECTION [None]
  - WHITE BLOOD CELL COUNT INCREASED [None]
